FAERS Safety Report 5130499-7 (Version None)
Quarter: 2006Q4

REPORT INFORMATION
  Report Type: 
  Country: None (occurrence: None)
  Receive Date: 20061019
  Receipt Date: 20060929
  Transmission Date: 20070319
  Serious: Yes (Other)
  Sender: FDA-Public Use
  Company Number: GR-GLAXOSMITHKLINE-B0440467A

PATIENT
  Age: 16 Year
  Sex: Male

DRUGS (4)
  1. AMOXIL [Suspect]
     Indication: TOOTHACHE
     Dosage: 500MG THREE TIMES PER DAY
     Route: 065
     Dates: start: 20060804, end: 20060809
  2. NIFLAMOL [Suspect]
     Indication: TOOTHACHE
     Route: 065
     Dates: start: 20060802, end: 20060809
  3. PONSTAN [Suspect]
     Indication: TOOTHACHE
     Dosage: 500MG PER DAY
     Route: 065
     Dates: start: 20060802, end: 20060809
  4. ASPIRINE 500 [Suspect]
     Indication: DRUG USE FOR UNKNOWN INDICATION
     Dosage: 500MG PER DAY
     Route: 048
     Dates: start: 20060802

REACTIONS (2)
  - ERYTHEMA MULTIFORME [None]
  - URTICARIA [None]
